FAERS Safety Report 9536193 (Version 1)
Quarter: 2013Q2

REPORT INFORMATION
  Report Type: Spontaneous
  Country: US (occurrence: None)
  Receive Date: 20130418
  Receipt Date: 20130418
  Transmission Date: 20140414
  Serious: Yes (Life-Threatening)
  Sender: FDA-Public Use
  Company Number: 1301USA004097

PATIENT
  Sex: Male

DRUGS (6)
  1. SINGULAIR (MONTELUKAST SODIUM) TABLET [Suspect]
     Indication: ASTHMA
  2. XOLAIR (OMALIZUMAB) [Suspect]
     Indication: ASTHMA
     Route: 058
  3. NEXIUM (ESOMEPRAZOLE MAGNESIUM) [Concomitant]
  4. XOPENEX (LEVALBUTEROL HYDROCHLORIDE) [Concomitant]
  5. SYMBICORT [Concomitant]
  6. NASONEX (MOMETASONE FUROATE) [Concomitant]

REACTIONS (1)
  - Angioedema [None]
